FAERS Safety Report 4912874-6 (Version None)
Quarter: 2006Q1

REPORT INFORMATION
  Report Type: 
  Country: None (occurrence: None)
  Receive Date: 20060210
  Receipt Date: 20060206
  Transmission Date: 20060701
  Serious: No
  Sender: FDA-Public Use
  Company Number: B0401474A

PATIENT
  Age: 71 Year
  Sex: Female

DRUGS (8)
  1. AMOXIL [Suspect]
     Indication: GASTRITIS
     Dosage: 250 MG / PER DAY / ORAL
     Route: 048
     Dates: start: 20051007, end: 20051008
  2. LANSOPRAZOLE [Suspect]
     Indication: GASTRITIS
     Dosage: 30 MG / PER DAY / ORAL
     Route: 048
     Dates: start: 20051007, end: 20051008
  3. CLARITHROMYCIN [Suspect]
     Indication: GASTRITIS
     Dosage: 200 MG / PER DAY / ORAL
     Route: 048
     Dates: start: 20051007, end: 20051008
  4. PRAVASTATIN SODIUM [Concomitant]
  5. FRUSEMIDE [Concomitant]
  6. MAGNESIUM OXIDE [Concomitant]
  7. CINAL [Concomitant]
  8. FLUOCINONIDE [Concomitant]

REACTIONS (6)
  - DRUG ERUPTION [None]
  - DRUG HYPERSENSITIVITY [None]
  - ERYTHEMA MULTIFORME [None]
  - LYMPHOCYTE STIMULATION TEST POSITIVE [None]
  - PRURITUS [None]
  - THERAPY NON-RESPONDER [None]
